FAERS Safety Report 10466473 (Version 1)
Quarter: 2014Q3

REPORT INFORMATION
  Report Type: Spontaneous
  Country: JP (occurrence: JP)
  Receive Date: 20140922
  Receipt Date: 20140922
  Transmission Date: 20150326
  Serious: Yes (Other)
  Sender: FDA-Public Use
  Company Number: PHHY2014JP117197

PATIENT
  Age: 68 Year
  Sex: Female
  Weight: 60 kg

DRUGS (6)
  1. GASTER [Concomitant]
     Active Substance: FAMOTIDINE
     Dosage: 60 MG, UNK
     Route: 048
  2. CEREKINON [Concomitant]
     Active Substance: TRIMEBUTINE
     Dosage: 300 MG, UNK
     Route: 048
  3. NAUZELIN [Concomitant]
     Active Substance: DOMPERIDONE
     Dosage: 30 MG, UNK
     Route: 048
  4. MUCOSTA [Concomitant]
     Active Substance: REBAMIPIDE
     Dosage: 300 MG, UNK
     Route: 048
  5. FEMARA [Suspect]
     Active Substance: LETROZOLE
     Indication: BREAST CANCER
     Dosage: 2.5 MG, DAILY
     Route: 048
     Dates: start: 20140805, end: 20140819
  6. BIO-THREE [Concomitant]
     Active Substance: HERBALS
     Dosage: 1200 MG, UNK
     Route: 048

REACTIONS (2)
  - Liver disorder [Recovered/Resolved]
  - Cardiac failure [Recovered/Resolved]

NARRATIVE: CASE EVENT DATE: 20140819
